FAERS Safety Report 20017991 (Version 2)
Quarter: 2021Q4

REPORT INFORMATION
  Report Type: Spontaneous
  Country: US (occurrence: US)
  Receive Date: 20211101
  Receipt Date: 20211108
  Transmission Date: 20220303
  Serious: Yes (Life-Threatening)
  Sender: FDA-Public Use
  Company Number: US-STRONGBRIDGE BIOPHARMA-2021-STR-000353

PATIENT
  Age: 66 Year
  Sex: Female

DRUGS (1)
  1. KEVEYIS [Suspect]
     Active Substance: DICHLORPHENAMIDE
     Indication: Familial periodic paralysis
     Dosage: 50 MG, QD
     Route: 048
     Dates: start: 20211021

REACTIONS (3)
  - Suicidal ideation [Not Recovered/Not Resolved]
  - Depressed mood [Unknown]
  - Pain [Unknown]

NARRATIVE: CASE EVENT DATE: 20211021
